FAERS Safety Report 6723481-7 (Version None)
Quarter: 2010Q2

REPORT INFORMATION
  Report Type: 
  Country: None (occurrence: None)
  Receive Date: 20100513
  Receipt Date: 20100506
  Transmission Date: 20101027
  Serious: Yes (Other)
  Sender: FDA-Public Use
  Company Number: US-BRISTOL-MYERS SQUIBB COMPANY-15090517

PATIENT
  Age: 5 Decade
  Sex: Female

DRUGS (4)
  1. COUMADIN [Suspect]
  2. PLAVIX [Suspect]
     Dosage: INTERRUPTED + RESTARTED
  3. CYMBALTA [Concomitant]
  4. KLONOPIN [Concomitant]
     Indication: PAIN IN EXTREMITY

REACTIONS (3)
  - AMNESIA [None]
  - BLOOD GLUCOSE DECREASED [None]
  - TREMOR [None]
